FAERS Safety Report 8585888 (Version 2)
Quarter: 2014Q2

REPORT INFORMATION
  Report Type: Spontaneous
  Country: US (occurrence: US)
  Receive Date: 20120530
  Receipt Date: 20140522
  Transmission Date: 20141212
  Serious: Yes (Hospitalization, Other)
  Sender: FDA-Public Use
  Company Number: US-ASTRAZENECA-2012SE32749

PATIENT
  Age: 78 Year
  Sex: Female
  Weight: 44.5 kg

DRUGS (7)
  1. NEXIUM [Suspect]
     Indication: GASTROOESOPHAGEAL REFLUX DISEASE
     Route: 048
     Dates: start: 201010, end: 2013
  2. NEXIUM [Suspect]
     Indication: GASTROOESOPHAGEAL REFLUX DISEASE
     Route: 048
     Dates: start: 201401, end: 20140504
  3. TAMOXIFEN [Suspect]
     Indication: NEOPLASM MALIGNANT
     Route: 048
     Dates: start: 2010
  4. HYDROCODONE [Concomitant]
     Indication: PAIN
     Dosage: 7.5-325 MG Q4H
     Route: 048
     Dates: start: 2010
  5. FENTANYL [Concomitant]
     Indication: PAIN
     Route: 048
     Dates: start: 201404
  6. ZOFRAN [Concomitant]
     Indication: NAUSEA
     Route: 048
     Dates: start: 2009
  7. LASIX [Concomitant]
     Indication: FLUID RETENTION
     Route: 048
     Dates: start: 201405

REACTIONS (6)
  - Neoplasm malignant [Unknown]
  - Haemorrhage [Not Recovered/Not Resolved]
  - Colon injury [Recovered/Resolved]
  - Ulcer [Unknown]
  - Intentional product misuse [Recovered/Resolved]
  - Drug dose omission [Not Recovered/Not Resolved]
